FAERS Safety Report 5989631-5 (Version None)
Quarter: 2008Q4

REPORT INFORMATION
  Report Type: 
  Country: None (occurrence: None)
  Receive Date: 20081208
  Receipt Date: 20081125
  Transmission Date: 20090506
  Serious: Yes (Hospitalization)
  Sender: FDA-Public Use
  Company Number: 2008-01262FE

PATIENT
  Age: 5 Year
  Sex: Male

DRUGS (1)
  1. ZOMACTON (ZOMACTON) (SOMATROPIN) [Suspect]
     Indication: GROWTH HORMONE DEFICIENCY
     Dosage: 4 MG QW SC
     Route: 058
     Dates: start: 20080708, end: 20081022

REACTIONS (1)
  - MEDULLOBLASTOMA [None]
